FAERS Safety Report 24372535 (Version 1)
Quarter: 2024Q3

REPORT INFORMATION
  Report Type: Spontaneous
  Country: RO (occurrence: RO)
  Receive Date: 20240927
  Receipt Date: 20240927
  Transmission Date: 20241016
  Serious: Yes (Other)
  Sender: ABBVIE
  Company Number: RO-AMGEN-ROUSP2024180424

PATIENT
  Age: 25 Year
  Sex: Male

DRUGS (4)
  1. ADALIMUMAB [Suspect]
     Active Substance: ADALIMUMAB
     Indication: Colitis
     Route: 058
  2. MESALAMINE [Concomitant]
     Active Substance: MESALAMINE
     Indication: Colitis
     Route: 065
  3. MESALAMINE [Concomitant]
     Active Substance: MESALAMINE
     Indication: Colitis
     Route: 065
  4. AZATHIOPRINE [Concomitant]
     Active Substance: AZATHIOPRINE
     Indication: Colitis
     Route: 065

REACTIONS (12)
  - Diarrhoea haemorrhagic [Recovered/Resolved]
  - Product use in unapproved indication [Unknown]
  - Hypoalbuminaemia [Recovered/Resolved]
  - Electrolyte imbalance [Recovered/Resolved]
  - Faecal calprotectin increased [Recovered/Resolved]
  - C-reactive protein increased [Recovered/Resolved]
  - Cytomegalovirus infection [Recovered/Resolved]
  - Hypoproteinaemia [Recovered/Resolved]
  - Normochromic normocytic anaemia [Recovered/Resolved]
  - Thrombocytosis [Recovered/Resolved]
  - Serum ferritin increased [Recovered/Resolved]
  - Weight decreased [Recovered/Resolved]
